FAERS Safety Report 6743233-1 (Version None)
Quarter: 2010Q2

REPORT INFORMATION
  Report Type: 
  Country: None (occurrence: None)
  Receive Date: 20100527
  Receipt Date: 20100426
  Transmission Date: 20101027
  Serious: No
  Sender: FDA-Public Use
  Company Number: US-BAYER-201014796BCC

PATIENT
  Age: 42 Year
  Sex: Female
  Weight: 120 kg

DRUGS (5)
  1. ALEVE [Suspect]
     Indication: HEADACHE
     Dosage: UNIT DOSE: 220 MG
     Route: 048
     Dates: start: 20100426
  2. AVAPRO [Concomitant]
     Route: 065
  3. CARDIUM [Concomitant]
     Route: 065
  4. DIOVAN [Concomitant]
     Route: 065
  5. CRESTOR [Concomitant]
     Route: 065

REACTIONS (1)
  - HEADACHE [None]
